FAERS Safety Report 8189258-3 (Version None)
Quarter: 2012Q1

REPORT INFORMATION
  Report Type: 
  Country: None (occurrence: None)
  Receive Date: 20120307
  Receipt Date: 20120224
  Transmission Date: 20120608
  Serious: Yes (Hospitalization, Other)
  Sender: FDA-Public Use
  Company Number: US-ELI_LILLY_AND_COMPANY-US201201006243

PATIENT
  Sex: Female

DRUGS (4)
  1. FORTEO [Suspect]
     Indication: OSTEOPOROSIS
     Dosage: 20 UG, QD
     Dates: start: 20111101, end: 20111214
  2. ASPIRIN [Concomitant]
  3. FORTEO [Suspect]
     Dosage: 20 UG, QD
     Dates: start: 20120101
  4. ANALGESICS [Concomitant]

REACTIONS (7)
  - BACK INJURY [None]
  - FALL [None]
  - WEIGHT DECREASED [None]
  - SPINAL FRACTURE [None]
  - MALAISE [None]
  - PAIN [None]
  - VOMITING [None]
